FAERS Safety Report 13417190 (Version 4)
Quarter: 2017Q2

REPORT INFORMATION
  Report Type: Report from Study
  Country: US (occurrence: US)
  Receive Date: 20170407
  Receipt Date: 20170609
  Transmission Date: 20170830
  Serious: Yes (Life-Threatening, Hospitalization, Other)
  Sender: FDA-Public Use
  Company Number: US-B.I. PHARMACEUTICALS,INC./RIDGEFIELD-2017-BI-011843

PATIENT
  Age: 84 Year
  Sex: Female

DRUGS (22)
  1. TAZTIA XT [Concomitant]
     Active Substance: DILTIAZEM HYDROCHLORIDE
     Indication: PRODUCT USED FOR UNKNOWN INDICATION
     Dosage: SIG: TAKE 1 CAPSULE DAILY BY MOUTH?30 CAPSULES?REFILS 11
     Route: 048
     Dates: start: 20170504
  2. SINEQUAN [Concomitant]
     Active Substance: DOXEPIN HYDROCHLORIDE
     Indication: PRODUCT USED FOR UNKNOWN INDICATION
     Dosage: SIG: TAKE 25 MG BY MOUTH NIGHTLY
     Route: 048
  3. ZOFRAN-ODT [Concomitant]
     Indication: NAUSEA
     Dosage: SIG: TAKE 1 TABLET BY MOUTH EVERY 8 HOURS AS NEEDED
     Route: 048
  4. OFEV [Suspect]
     Active Substance: NINTEDANIB
     Dosage: DAILY DOSE: USE AS DIRECTED BY PHYSICIAN
     Route: 048
     Dates: start: 20170227
  5. PROAMATINE [Concomitant]
     Active Substance: MIDODRINE HYDROCHLORIDE
     Indication: PRODUCT USED FOR UNKNOWN INDICATION
     Dosage: SIG: TAKE 2.5 MG BY MOUTH 2 TIMES DAILY
     Route: 048
  6. GLYCOLAX [Concomitant]
     Active Substance: POLYETHYLENE GLYCOL 3350
     Indication: PRODUCT USED FOR UNKNOWN INDICATION
     Route: 048
  7. ZOLOFT [Concomitant]
     Active Substance: SERTRALINE HYDROCHLORIDE
     Indication: PRODUCT USED FOR UNKNOWN INDICATION
     Dosage: SIG: TAKE 50 MG BY MOUTH DAILY
     Route: 048
  8. OFEV [Suspect]
     Active Substance: NINTEDANIB
     Route: 048
     Dates: start: 20170228
  9. TOPROL XL [Concomitant]
     Active Substance: METOPROLOL SUCCINATE
     Indication: PRODUCT USED FOR UNKNOWN INDICATION
     Dosage: 24 HR TABLET?SIG: TAKE 1 TABLET BY MOUTH DAILY?PATIENT TAKING: TAKE 50 MG BY MOUTH DAILY
     Route: 048
     Dates: start: 20161104
  10. OFEV [Suspect]
     Active Substance: NINTEDANIB
     Indication: IDIOPATHIC PULMONARY FIBROSIS
     Dosage: AS DIRECTED BY PHYSICIAN
     Route: 048
     Dates: start: 20170221
  11. OFEV [Suspect]
     Active Substance: NINTEDANIB
     Dosage: DAILY DOSE: TAKE ONE CAPSULE BY MOUTH TWICE A DAY 12HOURS APART WITH FOOD.
     Route: 048
     Dates: start: 20170223
  12. OFEV [Suspect]
     Active Substance: NINTEDANIB
     Dosage: AS DIRECTED BY PHYSICIAN
     Route: 048
     Dates: end: 20170401
  13. OFEV [Suspect]
     Active Substance: NINTEDANIB
     Route: 048
     Dates: end: 20170425
  14. LANOXIN [Concomitant]
     Active Substance: DIGOXIN
     Indication: PRODUCT USED FOR UNKNOWN INDICATION
     Dosage: SIG: TAKE 1 TABLET BY MOUTH EVERY MORNING?90 TABLET
     Route: 048
     Dates: start: 20161206
  15. TYLENOL [Concomitant]
     Active Substance: ACETAMINOPHEN
     Indication: PYREXIA
     Dosage: SIG: TAKE 650 MG BY MOUTH EVERY 6 HOURS BY MOUTH
     Route: 048
  16. MORPHINE SULFATE IR [Concomitant]
     Active Substance: MORPHINE SULFATE
     Indication: PAIN
     Dosage: SIG: TAKE 0.5 TABLETS (7.5 MG TOTAL) BY MOUTH EVERY 6 HOURS AS NEEDED FOR PAIN
     Route: 048
     Dates: start: 20170425
  17. OXYGEN. [Concomitant]
     Active Substance: OXYGEN
     Indication: PRODUCT USED FOR UNKNOWN INDICATION
     Dosage: SIG: INHALE 2 L/MIN INTO LUNGS CONTINUOUS
     Route: 055
  18. XARELTO [Concomitant]
     Active Substance: RIVAROXABAN
     Indication: PRODUCT USED FOR UNKNOWN INDICATION
     Dosage: SIG: TAKE 1 TABLET BY MOUTH DAILY?30 TABLETS
     Route: 048
     Dates: start: 20170308
  19. CHOLCALCIFEROL [Concomitant]
     Indication: PRODUCT USED FOR UNKNOWN INDICATION
     Dosage: SI: TAKE 1000 UNITS BY MOUTH DAILY
     Route: 048
  20. OFEV [Suspect]
     Active Substance: NINTEDANIB
     Dosage: DAILY DOSE: USE AS DIRECTED BY PHYSICIAN
     Route: 048
     Dates: start: 20170225
  21. TYLENOL [Concomitant]
     Active Substance: ACETAMINOPHEN
     Indication: PAIN
  22. MORPHINE SULFATE IR [Concomitant]
     Active Substance: MORPHINE SULFATE
     Indication: DYSPNOEA

REACTIONS (17)
  - Hypophagia [Not Recovered/Not Resolved]
  - Loss of consciousness [Not Recovered/Not Resolved]
  - Dehydration [Recovered/Resolved]
  - Vomiting [Recovered/Resolved]
  - Fatigue [Not Recovered/Not Resolved]
  - Nausea [Recovered/Resolved]
  - Decreased appetite [Recovered/Resolved]
  - Weight decreased [Not Recovered/Not Resolved]
  - Fatigue [Recovered/Resolved]
  - Weight decreased [Recovered/Resolved]
  - Diarrhoea [Recovered/Resolved]
  - Dehydration [Recovered/Resolved]
  - Diarrhoea [Not Recovered/Not Resolved]
  - Fall [Recovered/Resolved]
  - Fatigue [Not Recovered/Not Resolved]
  - Pharyngitis streptococcal [Not Recovered/Not Resolved]
  - Diarrhoea [Not Recovered/Not Resolved]

NARRATIVE: CASE EVENT DATE: 20170223
